FAERS Safety Report 9771233 (Version 1)
Quarter: 2013Q4

REPORT INFORMATION
  Report Type: Spontaneous
  Country: US (occurrence: US)
  Receive Date: 20131218
  Receipt Date: 20131218
  Transmission Date: 20140711
  Serious: Yes (Hospitalization)
  Sender: FDA-Public Use
  Company Number: US-B.I. PHARMACEUTICALS,INC./RIDGEFIELD-2013-BI-41870BP

PATIENT
  Age: 89 Year
  Sex: Female
  Weight: 46 kg

DRUGS (7)
  1. PRADAXA [Suspect]
     Indication: ATRIAL FIBRILLATION
     Dosage: 150 MG
     Route: 048
     Dates: start: 2011
  2. CLONAZEPAM [Concomitant]
     Indication: ANXIETY
     Dosage: 1.5 MG
     Route: 048
     Dates: start: 2008
  3. FERROUS SULFATE [Concomitant]
     Indication: MINERAL SUPPLEMENTATION
     Dosage: 650 MG
     Route: 048
     Dates: start: 201310
  4. BUMETANIDE [Concomitant]
     Indication: HYPERTENSION
     Dosage: 2 MG
     Route: 048
     Dates: start: 201309
  5. DIOVAN [Concomitant]
     Indication: HYPERTENSION
     Dosage: 80 MG
     Route: 048
     Dates: start: 201310
  6. FOSAMAX [Concomitant]
     Indication: BONE DENSITY DECREASED
     Dosage: 10 MG
     Route: 048
     Dates: start: 2000
  7. MILK OF MAGNESIA [Concomitant]
     Indication: CONSTIPATION
     Route: 048

REACTIONS (7)
  - Cardiac failure chronic [Recovered/Resolved]
  - Arthritis infective [Not Recovered/Not Resolved]
  - Weight decreased [Recovered/Resolved]
  - Blood urine present [Not Recovered/Not Resolved]
  - Haematochezia [Not Recovered/Not Resolved]
  - Urinary tract infection [Recovered/Resolved]
  - Anxiety [Unknown]
